FAERS Safety Report 16049613 (Version 1)
Quarter: 2019Q1

REPORT INFORMATION
  Report Type: Spontaneous
  Country: TW (occurrence: TW)
  Receive Date: 20190307
  Receipt Date: 20190307
  Transmission Date: 20190418
  Serious: Yes (Hospitalization)
  Sender: FDA-Public Use
  Company Number: TW-ALLERGAN-1908452US

PATIENT
  Sex: Female

DRUGS (1)
  1. FLUOXETINE HCL UNK [Suspect]
     Active Substance: FLUOXETINE HYDROCHLORIDE
     Indication: DEPRESSED MOOD
     Dosage: 10 MG, QD
     Route: 065

REACTIONS (7)
  - Dwarfism [Recovered/Resolved]
  - Abnormal behaviour [Recovered/Resolved]
  - Growth failure [Recovered/Resolved]
  - Depressed mood [Recovered/Resolved]
  - Off label use [Unknown]
  - Drug ineffective for unapproved indication [Unknown]
  - Weight decreased [Recovered/Resolved]
